FAERS Safety Report 7323358-2 (Version None)
Quarter: 2011Q1

REPORT INFORMATION
  Report Type: 
  Country: None (occurrence: None)
  Receive Date: 20110301
  Receipt Date: 20110217
  Transmission Date: 20110831
  Serious: Yes (Other)
  Sender: FDA-Public Use
  Company Number: ES-ELI_LILLY_AND_COMPANY-ES201102004844

PATIENT
  Sex: Female
  Weight: 69 kg

DRUGS (6)
  1. EUTIROX [Concomitant]
     Indication: HYPOTHYROIDISM
     Dosage: 1 D/F, DAILY (1/D)
     Route: 048
  2. CYMBALTA [Concomitant]
     Dosage: 1 D/F, DAILY (1/D)
     Route: 048
  3. OMEPRAZOLE [Concomitant]
     Indication: GASTRITIS PROPHYLAXIS
     Dosage: 1 D/F, DAILY (1/D)
     Route: 048
  4. ZALDIAR [Concomitant]
     Indication: PAIN
     Dosage: UNK, AS NEEDED
     Route: 048
  5. FORTEO [Suspect]
     Indication: SPINAL FRACTURE
     Dosage: 20 UG, DAILY (1/D)
     Route: 058
     Dates: start: 20090201
  6. MASTICAL D [Concomitant]
     Indication: OSTEOPOROSIS
     Dosage: 1 D/F, DAILY (1/D)
     Route: 048

REACTIONS (2)
  - SPINAL FRACTURE [None]
  - OFF LABEL USE [None]
